FAERS Safety Report 6602292-7 (Version None)
Quarter: 2010Q1

REPORT INFORMATION
  Report Type: 
  Country: None (occurrence: None)
  Receive Date: 20100225
  Receipt Date: 20100216
  Transmission Date: 20100710
  Serious: Yes (Hospitalization)
  Sender: FDA-Public Use
  Company Number: US-ABBOTT-10P-163-0626542-00

PATIENT
  Sex: Female
  Weight: 95.34 kg

DRUGS (15)
  1. TRICOR [Suspect]
     Indication: TYPE 2 DIABETES MELLITUS
     Dates: start: 20091215, end: 20100203
  2. ATACAND [Concomitant]
     Indication: RENAL DISORDER
  3. ATENOLOL [Concomitant]
     Indication: RENAL DISORDER
  4. ALLOPURINOL [Concomitant]
     Indication: NEPHROLITHIASIS
  5. MIRAPEX [Concomitant]
     Indication: PERIODIC LIMB MOVEMENT DISORDER
  6. CLONAZEPAM [Concomitant]
     Indication: PERIODIC LIMB MOVEMENT DISORDER
  7. SINGULAIR [Concomitant]
     Indication: ASTHMA
  8. ALBUTEROL [Concomitant]
     Indication: ASTHMA
  9. EFFEXOR [Concomitant]
     Indication: DEPRESSION
  10. SYNTHROID [Concomitant]
     Indication: HYPOTHYROIDISM
  11. METFORMIN HCL [Concomitant]
     Indication: TYPE 2 DIABETES MELLITUS
  12. PROVIGIL [Concomitant]
     Indication: PSYCHOMOTOR RETARDATION
  13. VITAMIN B-12 [Concomitant]
     Indication: VITAMIN SUPPLEMENTATION
  14. FOLIC ACID [Concomitant]
     Indication: FOLATE DEFICIENCY
  15. B 1 [Concomitant]
     Indication: VITAMIN SUPPLEMENTATION

REACTIONS (10)
  - ASTHENIA [None]
  - COORDINATION ABNORMAL [None]
  - HAND DEFORMITY [None]
  - MOTOR DYSFUNCTION [None]
  - MYOPATHY [None]
  - OEDEMA PERIPHERAL [None]
  - PAIN [None]
  - PROTEINURIA [None]
  - SKIN DISCOLOURATION [None]
  - SWELLING [None]
